FAERS Safety Report 9576866 (Version 1)
Quarter: 2013Q4

REPORT INFORMATION
  Report Type: Spontaneous
  Country: US (occurrence: US)
  Receive Date: 20131001
  Receipt Date: 20131001
  Transmission Date: 20140711
  Serious: No
  Sender: FDA-Public Use
  Company Number: US-AMGEN-USASP2013005154

PATIENT
  Age: 64 Year
  Sex: Female
  Weight: 104.31 kg

DRUGS (21)
  1. ENBREL [Suspect]
     Indication: PSORIATIC ARTHROPATHY
     Dosage: 50 MG, EVERY TEN DAYS
     Route: 058
  2. DEMADEX                            /01036501/ [Concomitant]
     Dosage: 5 MG, UNK
  3. ATARAX                             /00058401/ [Concomitant]
     Dosage: 10 MG/ML, UNK
  4. NORVASC [Concomitant]
     Dosage: 10 MG, UNK
  5. HYTRIN [Concomitant]
     Dosage: 10 MG, UNK
  6. DIOVAN [Concomitant]
     Dosage: 40 MG, UNK
  7. GABAPENTIN [Concomitant]
     Dosage: 100 MG, UNK
  8. LOVAZA [Concomitant]
     Dosage: 1 G, UNK
  9. PRILOSEC                           /00661201/ [Concomitant]
     Dosage: 10 MG, UNK
  10. TOPROL [Concomitant]
     Dosage: 25 MG, UNK
  11. MECLIZINE                          /00072801/ [Concomitant]
     Dosage: 12.5 MG, UNK
  12. AMITRIPTYLIN [Concomitant]
     Dosage: 10 MG, UNK
  13. CRESTOR [Concomitant]
     Dosage: 5 MG, UNK
  14. IBUPROFEN [Concomitant]
     Dosage: 200 MG, UNK
  15. VITAMIN D                          /00107901/ [Concomitant]
     Dosage: 1000 UNIT, UNK
  16. BENADRYL A [Concomitant]
     Dosage: 25 MG, UNK
  17. VITAMIN C                          /00008001/ [Concomitant]
     Dosage: 500 MG, UNK
  18. FOLIC ACID [Concomitant]
     Dosage: UNK
  19. ASPIRIN [Concomitant]
     Dosage: 81 MG, UNK
  20. POTASSIUM [Concomitant]
     Dosage: 25 MEQ EF, UNK
  21. GARLIC                             /01570501/ [Concomitant]
     Dosage: 1500 UNK, UNK

REACTIONS (6)
  - Skin fissures [Unknown]
  - Dry mouth [Unknown]
  - Dry skin [Unknown]
  - Pruritus [Unknown]
  - Injection site erythema [Unknown]
  - Injection site pruritus [Unknown]
